FAERS Safety Report 9447893 (Version 1)
Quarter: 2013Q3

REPORT INFORMATION
  Report Type: Spontaneous
  Country: FR (occurrence: FR)
  Receive Date: 20130808
  Receipt Date: 20130808
  Transmission Date: 20140515
  Serious: Yes (Hospitalization)
  Sender: FDA-Public Use
  Company Number: PHHY2013FR082983

PATIENT
  Age: 62 Year
  Sex: Female

DRUGS (3)
  1. RITALINE [Suspect]
     Indication: FATIGUE
     Dosage: 10 MG, QD
     Route: 048
     Dates: start: 20130628, end: 20130709
  2. CARBOPLATIN [Suspect]
     Dosage: 400 MG, PER COURSE
     Route: 042
     Dates: start: 20130627, end: 20130627
  3. SEROPLEX [Suspect]
     Dosage: 10 MG, QD
     Route: 048
     Dates: start: 20130628, end: 20130709

REACTIONS (3)
  - Thrombocytopenia [Not Recovered/Not Resolved]
  - Purpura [Unknown]
  - Haematoma [Recovered/Resolved]
